FAERS Safety Report 6070214-6 (Version None)
Quarter: 2009Q1

REPORT INFORMATION
  Report Type: 
  Country: None (occurrence: None)
  Receive Date: 20090209
  Receipt Date: 20090127
  Transmission Date: 20090719
  Serious: Yes (Other)
  Sender: FDA-Public Use
  Company Number: US-ROCHE-596937

PATIENT
  Sex: Female
  Weight: 66.8 kg

DRUGS (15)
  1. CELLCEPT [Suspect]
     Dosage: FORM: ENTERIC COATED TABLET
     Route: 048
     Dates: start: 20050525, end: 20050629
  2. CELLCEPT [Suspect]
     Route: 048
     Dates: start: 20050629, end: 20060104
  3. CELLCEPT [Suspect]
     Route: 048
     Dates: start: 20060104
  4. CELLCEPT [Suspect]
     Route: 048
     Dates: start: 20060207
  5. CELLCEPT [Suspect]
     Route: 048
     Dates: start: 20060308, end: 20070102
  6. CELLCEPT [Suspect]
     Route: 048
     Dates: start: 20070102
  7. PREDNISONE [Concomitant]
     Route: 048
     Dates: start: 20050221
  8. PREDNISONE [Concomitant]
     Route: 048
  9. PLAQUENIL [Concomitant]
  10. HYZAAR [Concomitant]
  11. ENALAPRIL MALEATE AND HYDROCHLOROTHIAZIDE [Concomitant]
  12. FERROUS SULFATE TAB [Concomitant]
     Route: 048
     Dates: start: 20070228
  13. FERROUS SULFATE TAB [Concomitant]
     Route: 048
  14. LISINOPRIL [Concomitant]
     Route: 048
     Dates: start: 20081209
  15. METOPROLOL TARTRATE [Concomitant]
     Route: 048
     Dates: start: 20081209

REACTIONS (1)
  - SYSTEMIC LUPUS ERYTHEMATOSUS [None]
